FAERS Safety Report 25926484 (Version 1)
Quarter: 2025Q4

REPORT INFORMATION
  Report Type: Spontaneous
  Country: US (occurrence: None)
  Receive Date: 20251015
  Receipt Date: 20251015
  Transmission Date: 20260118
  Serious: Yes (Hospitalization)
  Sender: FDA-CTU
  Company Number: None

PATIENT
  Sex: Female

DRUGS (3)
  1. VONVENDI [Suspect]
     Active Substance: VON WILLEBRAND FACTOR (RECOMBINANT)
     Indication: Von Willebrand^s disease
     Dosage: FREQUENCY : 3 TIMES A WEEK;?STRENGTH: 1300
     Route: 042
     Dates: start: 20250730
  2. HUMATE-P SOL [Concomitant]
  3. OCTREOTIDE 1 ML PF SYR [Concomitant]

REACTIONS (2)
  - Gastrointestinal haemorrhage [None]
  - Polyp [None]
